FAERS Safety Report 15163868 (Version 1)
Quarter: 2018Q3

REPORT INFORMATION
  Report Type: Report from Study
  Country: DE (occurrence: DE)
  Receive Date: 20180719
  Receipt Date: 20180719
  Transmission Date: 20181010
  Serious: Yes (Other)
  Sender: FDA-Public Use
  Company Number: DE-BIOGEN-2018BI00538148

PATIENT
  Sex: Female

DRUGS (1)
  1. AVONEX [Suspect]
     Active Substance: INTERFERON BETA-1A
     Indication: PRODUCT USED FOR UNKNOWN INDICATION
     Route: 030
     Dates: start: 20160516, end: 201705

REACTIONS (3)
  - Monoplegia [Not Recovered/Not Resolved]
  - Arthritis [Not Recovered/Not Resolved]
  - Bronchitis bacterial [Not Recovered/Not Resolved]

NARRATIVE: CASE EVENT DATE: 2017
